FAERS Safety Report 25833689 (Version 1)
Quarter: 2025Q3

REPORT INFORMATION
  Report Type: Spontaneous
  Country: US (occurrence: US)
  Receive Date: 20250922
  Receipt Date: 20250922
  Transmission Date: 20251021
  Serious: No
  Sender: ABBVIE
  Company Number: US-ABBVIE-6461541

PATIENT
  Age: 66 Year
  Sex: Female

DRUGS (1)
  1. OXYTROL FOR WOMEN [Suspect]
     Active Substance: OXYBUTYNIN
     Indication: Pollakiuria
     Route: 062
     Dates: start: 2005

REACTIONS (9)
  - Chest discomfort [Not Recovered/Not Resolved]
  - Headache [Recovering/Resolving]
  - Palpitations [Recovering/Resolving]
  - Feeling hot [Recovering/Resolving]
  - Heart rate increased [Recovered/Resolved]
  - Application site warmth [Recovering/Resolving]
  - Bladder disorder [Recovering/Resolving]
  - Poor quality product administered [Not Recovered/Not Resolved]
  - Product use complaint [Unknown]

NARRATIVE: CASE EVENT DATE: 20250915
